FAERS Safety Report 24083695 (Version 1)
Quarter: 2024Q3

REPORT INFORMATION
  Report Type: Spontaneous
  Country: US (occurrence: US)
  Receive Date: 20240712
  Receipt Date: 20240712
  Transmission Date: 20241016
  Serious: Yes (Hospitalization, Other)
  Sender: MSN LABORATORIES
  Company Number: US-MSNLABS-2024MSNSPO01460

PATIENT

DRUGS (3)
  1. CAPECITABINE [Suspect]
     Active Substance: CAPECITABINE
     Indication: Colon cancer
     Dosage: FOR TWO WEEKS ON THEN ONE WEEK OFF
     Route: 048
     Dates: start: 20240509
  2. CAPECITABINE [Suspect]
     Active Substance: CAPECITABINE
     Dosage: FOR TWO WEEKS ON AND ONE WEEK OFF FOR COLON CANCER
     Route: 048
     Dates: start: 20240521
  3. LASIX [Concomitant]
     Active Substance: FUROSEMIDE
     Indication: Product used for unknown indication
     Route: 065

REACTIONS (5)
  - Haematochezia [Not Recovered/Not Resolved]
  - Pleural effusion [Not Recovered/Not Resolved]
  - Full blood count decreased [Not Recovered/Not Resolved]
  - Ascites [Not Recovered/Not Resolved]
  - Fatigue [Not Recovered/Not Resolved]
